FAERS Safety Report 8353248-8 (Version None)
Quarter: 2012Q2

REPORT INFORMATION
  Report Type: 
  Country: None (occurrence: None)
  Receive Date: 20120511
  Receipt Date: 20120510
  Transmission Date: 20120825
  Serious: Yes (Hospitalization)
  Sender: FDA-Public Use
  Company Number: DE-AMGEN-DEUNI2012026908

PATIENT
  Age: 70 Year
  Sex: Female
  Weight: 67 kg

DRUGS (11)
  1. FLUOROURACIL [Concomitant]
     Dosage: 868 MG, QD
     Route: 042
  2. INSULIN [Concomitant]
     Dosage: UNK
  3. PEGFILGRASTIM [Suspect]
     Indication: PROPHYLAXIS
     Dosage: 6 MG, UNK
     Route: 058
     Dates: start: 20120125
  4. DOCETAXEL [Concomitant]
  5. ALOXI [Concomitant]
     Dosage: 500 MG, QD
     Route: 042
  6. MESNA [Concomitant]
     Dosage: 200 MG, QD
     Route: 042
  7. FOSAPREPITANT DIMEGLUMINE [Concomitant]
     Dosage: 150 MG, UNK
     Route: 042
  8. DEXAMETHASONE [Concomitant]
     Dosage: 12 MG, QD
     Route: 042
  9. EPIRUBICIN [Concomitant]
     Dosage: 174 MG, QD
     Route: 042
  10. CYCLOPHOSPHAMIDE [Concomitant]
     Dosage: 868 MG, QD
     Route: 042
  11. ACE INHIBITORS [Concomitant]
     Dosage: UNK

REACTIONS (1)
  - ARRHYTHMIA [None]
